FAERS Safety Report 8394178-5 (Version None)
Quarter: 2012Q2

REPORT INFORMATION
  Report Type: 
  Country: None (occurrence: None)
  Receive Date: 20120530
  Receipt Date: 20120525
  Transmission Date: 20120825
  Serious: Yes (Life-Threatening)
  Sender: FDA-Public Use
  Company Number: PHHY2012GB044916

PATIENT
  Age: 51 Year
  Sex: Male

DRUGS (1)
  1. FLUOROURACIL [Suspect]
     Indication: RECTAL CANCER
     Dates: start: 20120401

REACTIONS (3)
  - ARTERIOSPASM CORONARY [None]
  - CARDIAC ARREST [None]
  - VENTRICULAR FIBRILLATION [None]
